FAERS Safety Report 11154937 (Version 2)
Quarter: 2015Q2

REPORT INFORMATION
  Report Type: Spontaneous
  Country: JP (occurrence: None)
  Receive Date: 20150529
  Receipt Date: 20150622
  Transmission Date: 20150821
  Serious: Yes (Hospitalization, Other)
  Sender: FDA-Public Use
  Company Number: JP2015JPN069352

PATIENT
  Sex: Male

DRUGS (3)
  1. EPZICOM [Suspect]
     Active Substance: ABACAVIR SULFATE\LAMIVUDINE
     Indication: HIV INFECTION
     Route: 048
     Dates: start: 2015, end: 2015
  2. TIVICAY [Suspect]
     Active Substance: DOLUTEGRAVIR SODIUM
     Indication: HIV INFECTION
     Route: 048
     Dates: start: 2015, end: 2015
  3. TRUVADA (EMTRICITABINE, TENOFOVIR DISOPROXIL FUMARATE, EMTRICITABINE, TENOFOVIR DISOPROXIL FUMARATE, EMTRICITABINE, TENOFOVIR DISPROXIL FUMARATE, EMTRICITABINE, TENOFOVIR DISOPROXIL FUMARATE) [Concomitant]

REACTIONS (5)
  - Renal impairment [None]
  - Blood creatine phosphokinase increased [None]
  - Diarrhoea [None]
  - Vomiting [None]
  - Headache [None]

NARRATIVE: CASE EVENT DATE: 201504
